FAERS Safety Report 17751373 (Version 1)
Quarter: 2020Q2

REPORT INFORMATION
  Report Type: Spontaneous
  Country: US (occurrence: US)
  Receive Date: 20200506
  Receipt Date: 20200506
  Transmission Date: 20200714
  Serious: Yes (Life-Threatening, Disabling, Other)
  Sender: FDA-Public Use
  Company Number: None

PATIENT
  Age: 63 Year
  Sex: Male
  Weight: 129.27 kg

DRUGS (12)
  1. ALBUTEROL. [Concomitant]
     Active Substance: ALBUTEROL
  2. LEVABUTERAL [Concomitant]
  3. VASCEPA [Concomitant]
     Active Substance: ICOSAPENT ETHYL
  4. OMEPRAZOLE. [Concomitant]
     Active Substance: OMEPRAZOLE
  5. EQUATE COMFORT [Suspect]
     Active Substance: CARBOXYMETHYLCELLULOSE SODIUM\HYPROMELLOSES
     Indication: DRY EYE
     Dosage: 1 DROPPRFUL AS NEEDED  EYE DROPS
     Dates: start: 20170617, end: 20190704
  6. JANUMET XR [Concomitant]
     Active Substance: METFORMIN HYDROCHLORIDE\SITAGLIPTIN PHOSPHATE
  7. XIGDUO XR [Concomitant]
     Active Substance: DAPAGLIFLOZIN PROPANEDIOL\METFORMIN HYDROCHLORIDE
  8. PROBIOTIC [Concomitant]
     Active Substance: PROBIOTICS NOS
  9. CHARCOAL [Concomitant]
     Active Substance: ACTIVATED CHARCOAL
  10. FLUTICASONE NASAL SPRAY [Concomitant]
     Active Substance: FLUTICASONE
  11. IRBESARTAN. [Concomitant]
     Active Substance: IRBESARTAN
  12. MULTIVITAMINS [Concomitant]
     Active Substance: VITAMINS

REACTIONS (2)
  - Ataxia [None]
  - Cerebrovascular accident [None]

NARRATIVE: CASE EVENT DATE: 20190623
